FAERS Safety Report 8188835-3 (Version None)
Quarter: 2012Q1

REPORT INFORMATION
  Report Type: 
  Country: None (occurrence: None)
  Receive Date: 20120306
  Receipt Date: 20120303
  Transmission Date: 20120608
  Serious: No
  Sender: FDA-Public Use
  Company Number: US-TEVA-326219USA

PATIENT
  Sex: Female
  Weight: 68.1 kg

DRUGS (2)
  1. ACNE MEDICATION [Concomitant]
     Indication: ACNE
     Route: 061
  2. PLAN B ONE-STEP [Suspect]
     Indication: POST COITAL CONTRACEPTION
     Dosage: 1.5 MILLIGRAM;
     Route: 048
     Dates: start: 20120201, end: 20120201

REACTIONS (4)
  - NAUSEA [None]
  - BREAST TENDERNESS [None]
  - DEPRESSION [None]
  - IRRITABILITY [None]
